FAERS Safety Report 10049142 (Version 1)
Quarter: 2014Q2

REPORT INFORMATION
  Report Type: Report from Study
  Country: KR (occurrence: KR)
  Receive Date: 20140401
  Receipt Date: 20140401
  Transmission Date: 20141212
  Serious: Yes (Death)
  Sender: FDA-Public Use
  Company Number: KR-RANBAXY-2014US-79512

PATIENT
  Age: 72 Year
  Sex: Female

DRUGS (12)
  1. ATORVASTATIN [Suspect]
     Indication: DYSLIPIDAEMIA
     Dosage: 20 MG, QD
     Route: 048
     Dates: start: 20140110
  2. OMEGA-3-ACID ETHY ESTER 90 [Suspect]
     Indication: DYSLIPIDAEMIA
     Dosage: 4000 MG, QD
     Route: 048
     Dates: start: 20140110
  3. VESICARE [Concomitant]
     Indication: URINARY INCONTINENCE
     Dosage: 05 MG, QD
     Route: 048
     Dates: start: 20131017
  4. LACTOBY [Concomitant]
     Indication: CONSTIPATION PROPHYLAXIS
     Dosage: 01 DF, DAILY
     Route: 048
     Dates: start: 20131017
  5. CELECOXIB [Concomitant]
     Indication: ARTHRITIS
     Dosage: 200 MG, QD
     Route: 048
     Dates: start: 20120820
  6. AMLOSTAR [Concomitant]
     Indication: HYPERTENSION
     Dosage: 05 MG, QD
     Route: 048
     Dates: start: 20130715
  7. CONCOR [Concomitant]
     Indication: CONGESTIVE CARDIOMYOPATHY
     Dosage: 1.25 MG, QD
     Route: 048
     Dates: start: 20130729
  8. BUSPAR [Concomitant]
     Indication: ANXIETY DISORDER
     Dosage: 15 MG, QD
     Route: 048
     Dates: start: 20131010
  9. WARFARIN SODIUM [Concomitant]
     Indication: PULMONARY EMBOLISM
     Dosage: UNK
     Route: 065
     Dates: start: 20121020
  10. WARFARIN SODIUM [Concomitant]
     Indication: PULMONARY EMBOLISM
     Dosage: UNK
     Route: 065
     Dates: start: 20121023
  11. GLUCOPHAGE [Concomitant]
     Indication: DIABETES MELLITUS
     Dosage: 500 MG, BID
     Route: 048
     Dates: start: 20120327
  12. MULEX [Concomitant]
     Indication: BACK PAIN
     Dosage: 50 MG, BID
     Route: 048
     Dates: start: 20131010

REACTIONS (1)
  - Sudden death [Fatal]
